FAERS Safety Report 15067214 (Version 1)
Quarter: 2018Q2

REPORT INFORMATION
  Report Type: Report from Study
  Country: US (occurrence: US)
  Receive Date: 20180626
  Receipt Date: 20180626
  Transmission Date: 20180711
  Serious: Yes (Hospitalization, Other)
  Sender: FDA-Public Use
  Company Number: US-GILEAD-2018-0346481

PATIENT
  Age: 46 Year
  Sex: Female

DRUGS (2)
  1. AZTREONAM LYSINE [Suspect]
     Active Substance: AZTREONAM LYSINE
     Indication: CYSTIC FIBROSIS
     Dosage: 75 MG, TID, CONTINUOUS USE, NOT ALTERNATING MONTHS
     Route: 055
     Dates: start: 20140127
  2. AZTREONAM LYSINE [Suspect]
     Active Substance: AZTREONAM LYSINE
     Dosage: 75 MG, TID, CONTINUOUS USE, NOT ALTERNATING MONTHS
     Route: 055

REACTIONS (3)
  - Cystic fibrosis [Unknown]
  - Off label use [Not Recovered/Not Resolved]
  - Intentional dose omission [Recovered/Resolved]
